FAERS Safety Report 18963551 (Version 1)
Quarter: 2021Q1

REPORT INFORMATION
  Report Type: Spontaneous
  Country: US (occurrence: US)
  Receive Date: 20210302
  Receipt Date: 20210302
  Transmission Date: 20210420
  Serious: Yes (Other)
  Sender: FDA-Public Use
  Company Number: None

PATIENT
  Age: 62 Year
  Sex: Male
  Weight: 84.37 kg

DRUGS (1)
  1. PLAQUENIL [Suspect]
     Active Substance: HYDROXYCHLOROQUINE SULFATE
     Indication: TENDON DISORDER
     Route: 048
     Dates: start: 20200630, end: 20200705

REACTIONS (1)
  - Constipation [None]

NARRATIVE: CASE EVENT DATE: 20200630
